FAERS Safety Report 5979010-9 (Version None)
Quarter: 2008Q4

REPORT INFORMATION
  Report Type: 
  Country: None (occurrence: None)
  Receive Date: 20081204
  Receipt Date: 20081125
  Transmission Date: 20090506
  Serious: Yes (Hospitalization)
  Sender: FDA-Public Use
  Company Number: JP-JNJFOC-20081200471

PATIENT
  Age: 66 Year
  Sex: Male

DRUGS (4)
  1. CRAVIT [Suspect]
     Indication: OMPHALITIS
     Route: 048
  2. CEFAZOLIN [Suspect]
     Indication: OMPHALITIS
     Route: 042
  3. CEFTAZIDIME [Suspect]
     Indication: OMPHALITIS
     Route: 065
  4. GENTAMICINE SULFATE [Suspect]
     Indication: OMPHALITIS
     Route: 065

REACTIONS (2)
  - PSEUDOMEMBRANOUS COLITIS [None]
  - SHOCK [None]
